FAERS Safety Report 20015879 (Version 1)
Quarter: 2021Q4

REPORT INFORMATION
  Report Type: Spontaneous
  Country: US (occurrence: None)
  Receive Date: 20211101
  Receipt Date: 20211101
  Transmission Date: 20220303
  Serious: Yes (Other)
  Sender: FDA-Public Use
  Company Number: None

PATIENT
  Age: 45 Year
  Sex: Female

DRUGS (2)
  1. ARISTADA [Suspect]
     Active Substance: ARIPIPRAZOLE LAUROXIL
  2. ARISTADA [Concomitant]
     Active Substance: ARIPIPRAZOLE LAUROXIL

REACTIONS (1)
  - Device occlusion [None]

NARRATIVE: CASE EVENT DATE: 20211028
